FAERS Safety Report 15641182 (Version 2)
Quarter: 2019Q1

REPORT INFORMATION
  Report Type: Spontaneous
  Country: US (occurrence: US)
  Receive Date: 20181120
  Receipt Date: 20190125
  Transmission Date: 20190417
  Serious: Yes (Other)
  Sender: FDA-Public Use
  Company Number: US-DSJP-DSU-2017-107670

PATIENT

DRUGS (4)
  1. METOPROLOL. [Concomitant]
     Active Substance: METOPROLOL
     Indication: HYPERTENSION
     Dosage: 50 MG, QD
  2. BENICAR [Suspect]
     Active Substance: OLMESARTAN MEDOXOMIL
     Indication: HYPERTENSION
     Dosage: 20 MG, QD
     Route: 048
  3. BENICAR HCT [Suspect]
     Active Substance: HYDROCHLOROTHIAZIDE\OLMESARTAN MEDOXOMIL
     Indication: PRODUCT USED FOR UNKNOWN INDICATION
     Dosage: 20-12.5MG
  4. BENICAR [Suspect]
     Active Substance: OLMESARTAN MEDOXOMIL
     Dosage: 40 MG, UNK

REACTIONS (9)
  - Dyspepsia [Unknown]
  - Pyloric stenosis [Unknown]
  - Sprue-like enteropathy [Unknown]
  - Biliary colic [Unknown]
  - Headache [Unknown]
  - Hiatus hernia [Unknown]
  - Muscle spasms [Unknown]
  - Peptic ulcer [Unknown]
  - Gastritis haemorrhagic [Unknown]

NARRATIVE: CASE EVENT DATE: 200911
